FAERS Safety Report 24451348 (Version 2)
Quarter: 2024Q4

REPORT INFORMATION
  Report Type: Spontaneous
  Country: US (occurrence: US)
  Receive Date: 20241017
  Receipt Date: 20241030
  Transmission Date: 20250114
  Serious: Yes (Death, Life-Threatening, Hospitalization)
  Sender: TEVA
  Company Number: US-TEVA-VS-3253828

PATIENT
  Age: 61 Year
  Sex: Male

DRUGS (10)
  1. ADENOSINE [Suspect]
     Active Substance: ADENOSINE
     Indication: Atrial fibrillation
     Route: 065
  2. ADENOSINE [Suspect]
     Active Substance: ADENOSINE
     Indication: Atrial fibrillation
     Route: 065
  3. THEOPHYLLINE [Suspect]
     Active Substance: THEOPHYLLINE
     Indication: Chronic obstructive pulmonary disease
     Dosage: HOME THEOPHYLLINE DOSE
     Route: 065
  4. LEVOCARNITINE [Suspect]
     Active Substance: LEVOCARNITINE
     Indication: Toxicity to various agents
     Route: 065
  5. NOREPINEPHRINE [Suspect]
     Active Substance: NOREPINEPHRINE\NOREPINEPHRINE BITARTRATE
     Indication: Vasoplegia syndrome
     Route: 065
  6. ESMOLOL [Suspect]
     Active Substance: ESMOLOL HYDROCHLORIDE
     Indication: Vasodilatation
     Dosage: INFUSION
     Route: 065
  7. METHYLENE BLUE [Suspect]
     Active Substance: METHYLENE BLUE
     Indication: Toxicity to various agents
     Route: 065
  8. METOPROLOL TARTRATE [Suspect]
     Active Substance: METOPROLOL TARTRATE
     Indication: Atrial fibrillation
     Route: 042
  9. AMIODARONE [Suspect]
     Active Substance: AMIODARONE
     Indication: Atrial fibrillation
     Dosage: BOLUS
     Route: 065
  10. EPINEPHRINE [Suspect]
     Active Substance: EPINEPHRINE
     Indication: Vasoplegia syndrome
     Dosage: DRIP
     Route: 065

REACTIONS (10)
  - Toxicity to various agents [Fatal]
  - Disseminated intravascular coagulation [Fatal]
  - Shock [Fatal]
  - Vasoplegia syndrome [Fatal]
  - Atrial fibrillation [Unknown]
  - Hypotension [Unknown]
  - Hypoxia [Unknown]
  - Vasodilatation [Fatal]
  - Generalised tonic-clonic seizure [Unknown]
  - Drug ineffective [Fatal]
